FAERS Safety Report 5023425-2 (Version None)
Quarter: 2006Q2

REPORT INFORMATION
  Report Type: 
  Country: None (occurrence: None)
  Receive Date: 20060606
  Receipt Date: 20060525
  Transmission Date: 20061013
  Serious: Yes (Hospitalization)
  Sender: FDA-Public Use
  Company Number: GXKR2006CZ02975

PATIENT
  Age: 30 Year
  Sex: Male

DRUGS (1)
  1. DOXYCYCLINE (NGX) (DOXYCYCLINE) TABLET, 100MG [Suspect]
     Indication: PYREXIA
     Dosage: 100 MG, BID, ORAL
     Route: 048
     Dates: start: 20060424, end: 20060429

REACTIONS (3)
  - BODY TEMPERATURE DECREASED [None]
  - GENITAL EROSION [None]
  - STEVENS-JOHNSON SYNDROME [None]
